FAERS Safety Report 6329120-1 (Version None)
Quarter: 2009Q3

REPORT INFORMATION
  Report Type: 
  Country: None (occurrence: None)
  Receive Date: 20090826
  Receipt Date: 20090813
  Transmission Date: 20100115
  Serious: Yes (Hospitalization, Other)
  Sender: FDA-Public Use
  Company Number: CZ-ELI_LILLY_AND_COMPANY-CZ200907003721

PATIENT
  Age: 29 Year
  Sex: Female

DRUGS (2)
  1. ZYPREXA [Suspect]
     Indication: PSYCHOTIC DISORDER
     Dosage: 15 MG, DAILY (1/D)
     Route: 048
     Dates: start: 20090708, end: 20090715
  2. RIVOTRIL [Concomitant]
     Indication: PSYCHOTIC DISORDER
     Dosage: 1.5 MG, UNK
     Route: 048
     Dates: start: 20090708, end: 20090715

REACTIONS (5)
  - DERMATITIS ALLERGIC [None]
  - INFECTION [None]
  - LEUKOPENIA [None]
  - PYREXIA [None]
  - THROMBOCYTOPENIA [None]
